FAERS Safety Report 9837979 (Version 1)
Quarter: 2013Q4

REPORT INFORMATION
  Report Type: Spontaneous
  Country: US (occurrence: None)
  Receive Date: 20131205
  Receipt Date: 20131205
  Transmission Date: 20140711
  Serious: Yes (Other)
  Sender: FDA-Public Use
  Company Number: 163-POMAL-13100094

PATIENT
  Age: 70 Year
  Sex: Male
  Weight: 108.9 kg

DRUGS (19)
  1. POMALYST [Suspect]
     Indication: PLASMA CELL MYELOMA
     Dosage: 21 IN 28 D
     Route: 048
     Dates: start: 201306
  2. PANTOPRAZOLE SODIUM [Concomitant]
  3. LASIX [Concomitant]
  4. CALCITRIOL [Concomitant]
  5. DEXAMETHASONE [Concomitant]
  6. CITALOPRAM HBR [Concomitant]
  7. GLIMEPIRIDE [Concomitant]
  8. ACYCLOVIR [Concomitant]
  9. OXYCODONE HCL [Concomitant]
  10. ALPRAZOLAM [Concomitant]
  11. OXYCODONE/ACETAMINOPHEN [Concomitant]
  12. ARTIFICIAL TEARS [Concomitant]
  13. CALCIUM [Concomitant]
  14. ASPIRIN [Concomitant]
  15. LIDODERM [Concomitant]
  16. VITAMIN E [Concomitant]
  17. TYLENOL [Concomitant]
  18. ALBUTEROL SULFA [Concomitant]
  19. ARANESP [Concomitant]

REACTIONS (1)
  - Haemoglobin decreased [None]
